FAERS Safety Report 18390391 (Version 1)
Quarter: 2020Q4

REPORT INFORMATION
  Report Type: Spontaneous
  Country: FR (occurrence: FR)
  Receive Date: 20201015
  Receipt Date: 20201015
  Transmission Date: 20210114
  Serious: Yes (Other)
  Sender: FDA-Public Use
  Company Number: FR-009507513-2001FRA000269

PATIENT
  Age: 30 Year
  Sex: Female

DRUGS (1)
  1. NEXPLANON [Suspect]
     Active Substance: ETONOGESTREL
     Indication: TRANSDERMAL CONTRACEPTION
     Dosage: UNK
     Route: 058
     Dates: start: 2013, end: 20161204

REACTIONS (2)
  - Pruritus [Recovered/Resolved]
  - Granuloma [Recovered/Resolved with Sequelae]

NARRATIVE: CASE EVENT DATE: 2013
